FAERS Safety Report 17468604 (Version 1)
Quarter: 2020Q1

REPORT INFORMATION
  Report Type: Spontaneous
  Country: US (occurrence: US)
  Receive Date: 20200227
  Receipt Date: 20200227
  Transmission Date: 20200409
  Serious: No
  Sender: FDA-Public Use
  Company Number: US-BAYER-2020-033579

PATIENT
  Age: 49 Year
  Sex: Male

DRUGS (3)
  1. CLARITIN [Suspect]
     Active Substance: LORATADINE
     Indication: SNEEZING
  2. CLARITIN [Suspect]
     Active Substance: LORATADINE
     Indication: MULTIPLE ALLERGIES
     Route: 048
     Dates: start: 20200125, end: 20200225
  3. CLARITIN [Suspect]
     Active Substance: LORATADINE
     Indication: LACRIMATION INCREASED

REACTIONS (1)
  - Drug ineffective [Not Recovered/Not Resolved]

NARRATIVE: CASE EVENT DATE: 20200125
